FAERS Safety Report 12557524 (Version 1)
Quarter: 2016Q3

REPORT INFORMATION
  Report Type: Report from Study
  Country: US (occurrence: US)
  Receive Date: 20160714
  Receipt Date: 20160714
  Transmission Date: 20161109
  Serious: Yes (Other)
  Sender: FDA-Public Use
  Company Number: US-BAYER-2016-132679

PATIENT
  Age: 55 Year
  Sex: Male

DRUGS (16)
  1. OMEPRAZOLE. [Concomitant]
     Active Substance: OMEPRAZOLE
  2. VITAMIN A [Concomitant]
     Active Substance: VITAMIN A
  3. LISINOPRIL. [Concomitant]
     Active Substance: LISINOPRIL
  4. WARFARIN [Concomitant]
     Active Substance: WARFARIN
  5. BUPRENORPHINE. [Concomitant]
     Active Substance: BUPRENORPHINE
  6. MAXZIDE [Concomitant]
     Active Substance: HYDROCHLOROTHIAZIDE\TRIAMTERENE
  7. VITAMIN D [Concomitant]
     Active Substance: CHOLECALCIFEROL
  8. VITAMIN E [Concomitant]
     Active Substance: .ALPHA.-TOCOPHEROL
  9. NEXAVAR [Suspect]
     Active Substance: SORAFENIB
     Indication: HEPATOCELLULAR CARCINOMA
     Dosage: 200 MG, BID
     Dates: start: 20160624, end: 20160705
  10. PROAIR HFA [Concomitant]
     Active Substance: ALBUTEROL SULFATE
  11. NADOLOL. [Concomitant]
     Active Substance: NADOLOL
  12. ASPIRIN. [Concomitant]
     Active Substance: ASPIRIN
  13. SPIRONOLACTONE. [Concomitant]
     Active Substance: SPIRONOLACTONE
  14. OXYCODONE [Concomitant]
     Active Substance: OXYCODONE
  15. KLOR-CON [Concomitant]
     Active Substance: POTASSIUM CHLORIDE
  16. CENTRUM SILVER [Concomitant]
     Active Substance: MINERALS\VITAMINS

REACTIONS (8)
  - Rash [Not Recovered/Not Resolved]
  - Accidental overdose [None]
  - Physical product label issue [None]
  - Palmar-plantar erythrodysaesthesia syndrome [Not Recovered/Not Resolved]
  - Hepatic encephalopathy [None]
  - Altered state of consciousness [None]
  - Ammonia increased [None]
  - Lethargy [None]

NARRATIVE: CASE EVENT DATE: 20160624
